FAERS Safety Report 25060287 (Version 1)
Quarter: 2025Q1

REPORT INFORMATION
  Report Type: Spontaneous
  Country: US (occurrence: US)
  Receive Date: 20250310
  Receipt Date: 20250310
  Transmission Date: 20250409
  Serious: No
  Sender: SANOFI AVENTIS
  Company Number: US-SA-2025SA068027

PATIENT
  Age: 73 Year
  Sex: Female
  Weight: 82.1 kg

DRUGS (20)
  1. DUPIXENT [Suspect]
     Active Substance: DUPILUMAB
     Indication: Dermatitis atopic
     Route: 058
  2. DUPIXENT [Suspect]
     Active Substance: DUPILUMAB
     Dosage: 300 MG, QOW
     Route: 058
  3. TACROLIMUS [Concomitant]
     Active Substance: TACROLIMUS
  4. Gold bond intensive healing [Concomitant]
  5. OMEPRAZOLE [Concomitant]
     Active Substance: OMEPRAZOLE
  6. YUVAFEM [Concomitant]
     Active Substance: ESTRADIOL HEMIHYDRATE
  7. REFRESH CELLUVISC [Concomitant]
     Active Substance: CARBOXYMETHYLCELLULOSE SODIUM
  8. VANICREAM [Concomitant]
     Active Substance: TITANIUM DIOXIDE\ZINC OXIDE
  9. METOPROLOL SUCCINATE [Concomitant]
     Active Substance: METOPROLOL SUCCINATE
  10. FEBUXOSTAT [Concomitant]
     Active Substance: FEBUXOSTAT
  11. ISOSORBIDE DINITRATE [Concomitant]
     Active Substance: ISOSORBIDE DINITRATE
  12. COLCHICINE [Concomitant]
     Active Substance: COLCHICINE
  13. FAMCICLOVIR [Concomitant]
     Active Substance: FAMCICLOVIR
  14. Butenafine HCL [Concomitant]
  15. COENZYME Q10 [Concomitant]
     Active Substance: DIETARY SUPPLEMENT\UBIDECARENONE
  16. COLACE [Concomitant]
     Active Substance: DOCUSATE SODIUM
  17. ATORVASTATIN CALCIUM [Concomitant]
     Active Substance: ATORVASTATIN CALCIUM
  18. VITAMIN D3 [Concomitant]
     Active Substance: CHOLECALCIFEROL
  19. REFRESH CLASSIC LUBRICANT EYE DROPS [Concomitant]
  20. BUDESONIDE [Concomitant]
     Active Substance: BUDESONIDE

REACTIONS (1)
  - Pruritus [Unknown]
